FAERS Safety Report 4280553-7 (Version None)
Quarter: 2004Q1

REPORT INFORMATION
  Report Type: 
  Country: None (occurrence: None)
  Receive Date: 20040128
  Receipt Date: 20040121
  Transmission Date: 20041129
  Serious: Yes (Other)
  Sender: FDA-Public Use
  Company Number: WAES 0401GBR00179

PATIENT

DRUGS (1)
  1. ARAMINE [Suspect]
     Route: 051

REACTIONS (2)
  - BLOOD PRESSURE INCREASED [None]
  - MEDICATION ERROR [None]
